FAERS Safety Report 25196048 (Version 1)
Quarter: 2025Q2

REPORT INFORMATION
  Report Type: Spontaneous
  Country: KR (occurrence: KR)
  Receive Date: 20250415
  Receipt Date: 20250415
  Transmission Date: 20250717
  Serious: Yes (Hospitalization)
  Sender: ENDO
  Company Number: KR-ENDO USA, INC.-2025-000974

PATIENT
  Age: 21 Year
  Sex: Male

DRUGS (1)
  1. ADRENALIN [Suspect]
     Active Substance: EPINEPHRINE
     Indication: Haemostasis

REACTIONS (3)
  - Pancreatitis acute [Recovered/Resolved]
  - Intestinal haematoma [Recovered/Resolved]
  - Off label use [Recovered/Resolved]
